FAERS Safety Report 4911246-8 (Version None)
Quarter: 2006Q1

REPORT INFORMATION
  Report Type: 
  Country: None (occurrence: None)
  Receive Date: 20060209
  Receipt Date: 20060131
  Transmission Date: 20060701
  Serious: Yes (Death, Life-Threatening)
  Sender: FDA-Public Use
  Company Number: HQWYE454808NOV05

PATIENT
  Age: 71 Year
  Sex: Male

DRUGS (7)
  1. ANCARON (AMIODARONE, TABLET) [Suspect]
     Indication: VENTRICULAR TACHYCARDIA
     Dosage: 200  MG 1X PER 1 DAY ORAL
     Route: 048
     Dates: start: 20041028, end: 20051020
  2. LASIX [Concomitant]
  3. COVERSYL (PERINDOPRIL) [Concomitant]
  4. NORVASC [Concomitant]
  5. WARFARIN SODIUM [Concomitant]
  6. PRAVASTATIN [Concomitant]
  7. HARNAL (TAMSULOSIN HYDROCHLORIDE) [Concomitant]

REACTIONS (22)
  - ACQUIRED DIAPHRAGMATIC EVENTRATION [None]
  - ALANINE AMINOTRANSFERASE INCREASED [None]
  - ASPARTATE AMINOTRANSFERASE INCREASED [None]
  - BLOOD ALKALINE PHOSPHATASE INCREASED [None]
  - BLOOD BILIRUBIN INCREASED [None]
  - BLOOD CHLORIDE DECREASED [None]
  - BLOOD CHLORIDE INCREASED [None]
  - BLOOD LACTATE DEHYDROGENASE INCREASED [None]
  - BLOOD PRESSURE DECREASED [None]
  - BLOOD SODIUM INCREASED [None]
  - CARDIAC FAILURE [None]
  - CARDIAC FAILURE CONGESTIVE [None]
  - CARDIOMEGALY [None]
  - CONGESTIVE CARDIOMYOPATHY [None]
  - HEART RATE INCREASED [None]
  - INTERSTITIAL LUNG DISEASE [None]
  - METABOLIC ACIDOSIS [None]
  - PLEURAL EFFUSION [None]
  - PULMONARY OEDEMA [None]
  - RESPIRATORY FAILURE [None]
  - URINE OUTPUT DECREASED [None]
  - VENTRICULAR TACHYCARDIA [None]
